FAERS Safety Report 13254855 (Version 2)
Quarter: 2017Q1

REPORT INFORMATION
  Report Type: Spontaneous
  Country: US (occurrence: US)
  Receive Date: 20170221
  Receipt Date: 20170322
  Transmission Date: 20170428
  Serious: No
  Sender: FDA-Public Use
  Company Number: US-PFIZER INC-2017069707

PATIENT

DRUGS (4)
  1. AMIDATE [Suspect]
     Active Substance: ETOMIDATE
     Indication: SEDATION
     Dosage: 40 MG, SINGLE
     Route: 042
     Dates: start: 20170105
  2. VERSED [Concomitant]
     Active Substance: MIDAZOLAM HYDROCHLORIDE
     Dosage: 2 MG, UNK
     Route: 042
  3. SUCCINYLCHOLINE [Concomitant]
     Active Substance: SUCCINYLCHOLINE
     Dosage: 150 MG, UNK
     Route: 042
  4. AMIDATE [Suspect]
     Active Substance: ETOMIDATE
     Dosage: UNK

REACTIONS (1)
  - Drug ineffective [Unknown]
